FAERS Safety Report 23297491 (Version 2)
Quarter: 2024Q1

REPORT INFORMATION
  Report Type: Spontaneous
  Country: US (occurrence: US)
  Receive Date: 20231214
  Receipt Date: 20240110
  Transmission Date: 20240409
  Serious: No
  Sender: FDA-Public Use
  Company Number: US-AMGEN-USASP2023221637

PATIENT
  Age: 73 Year
  Sex: Male
  Weight: 102.95 kg

DRUGS (2)
  1. REPATHA [Suspect]
     Active Substance: EVOLOCUMAB
     Indication: Renal disorder
     Dosage: 140 MILLIGRAM, Q2WK
     Route: 058
  2. REPATHA [Suspect]
     Active Substance: EVOLOCUMAB
     Indication: Blood cholesterol increased

REACTIONS (2)
  - Drug dose omission by device [Unknown]
  - Incorrect dose administered by device [Unknown]

NARRATIVE: CASE EVENT DATE: 20231210
